FAERS Safety Report 24387503 (Version 1)
Quarter: 2024Q4

REPORT INFORMATION
  Report Type: Spontaneous
  Country: US (occurrence: US)
  Receive Date: 20241002
  Receipt Date: 20241002
  Transmission Date: 20250115
  Serious: No
  Sender: ABBVIE
  Company Number: US-ABBVIE-5939212

PATIENT
  Age: 54 Year
  Sex: Male

DRUGS (5)
  1. HUMIRA [Suspect]
     Active Substance: ADALIMUMAB
     Indication: Synovitis
     Dosage: CITRATE FREE?40 MILLIGRAM
     Route: 058
  2. HUMIRA [Suspect]
     Active Substance: ADALIMUMAB
     Indication: Acne
  3. HUMIRA [Suspect]
     Active Substance: ADALIMUMAB
     Indication: Rash pustular
  4. HUMIRA [Suspect]
     Active Substance: ADALIMUMAB
     Indication: Bone hypertrophy
  5. HUMIRA [Suspect]
     Active Substance: ADALIMUMAB
     Indication: Osteitis

REACTIONS (3)
  - Off label use [Unknown]
  - Injection site haemorrhage [Not Recovered/Not Resolved]
  - Device issue [Not Recovered/Not Resolved]

NARRATIVE: CASE EVENT DATE: 20240918
